FAERS Safety Report 4427681-0 (Version None)
Quarter: 2004Q3

REPORT INFORMATION
  Report Type: 
  Country: None (occurrence: None)
  Receive Date: 20040816
  Receipt Date: 20040816
  Transmission Date: 20050211
  Serious: Yes (Other)
  Sender: FDA-Public Use
  Company Number: None

PATIENT
  Sex: Female
  Weight: 54.8852 kg

DRUGS (1)
  1. ZOLOFT [Suspect]
     Indication: DEPRESSION
     Dosage: 25MG DAY ORAL
     Route: 048
     Dates: start: 20040809, end: 20040814

REACTIONS (5)
  - AKATHISIA [None]
  - DISTURBANCE IN ATTENTION [None]
  - EYE DISORDER [None]
  - INSOMNIA [None]
  - MUSCLE TWITCHING [None]
